FAERS Safety Report 19466732 (Version 1)
Quarter: 2021Q2

REPORT INFORMATION
  Report Type: Report from Study
  Country: US (occurrence: US)
  Receive Date: 20210628
  Receipt Date: 20210628
  Transmission Date: 20210717
  Serious: No
  Sender: FDA-Public Use
  Company Number: NVSC2021US133378

PATIENT

DRUGS (2)
  1. ENTRESTO [Suspect]
     Active Substance: SACUBITRIL\VALSARTAN
     Dosage: UNK (RESUMED ABOUT 3 TO 4 MONTHS AGO)
     Route: 065
  2. ENTRESTO [Suspect]
     Active Substance: SACUBITRIL\VALSARTAN
     Indication: PRODUCT USED FOR UNKNOWN INDICATION
     Dosage: UNK (TOOK ABOUT A YEAR AND HALF A FEW YEARS AGO)
     Route: 065

REACTIONS (3)
  - Cough [Unknown]
  - Ejection fraction abnormal [Unknown]
  - Throat clearing [Unknown]
